FAERS Safety Report 10282312 (Version 3)
Quarter: 2014Q3

REPORT INFORMATION
  Report Type: Report from Study
  Country: CA (occurrence: CA)
  Receive Date: 20140707
  Receipt Date: 20140820
  Transmission Date: 20150326
  Serious: Yes (Hospitalization, Other)
  Sender: FDA-Public Use
  Company Number: CA-ABBVIE-14P-028-1254827-00

PATIENT
  Age: 39 Year
  Sex: Male
  Weight: 60 kg

DRUGS (3)
  1. HUMIRA [Suspect]
     Active Substance: ADALIMUMAB
     Route: 058
     Dates: start: 201407
  2. HUMIRA [Suspect]
     Active Substance: ADALIMUMAB
     Indication: CROHN^S DISEASE
     Dosage: LOADING DOSE WEEK 0
     Route: 058
     Dates: start: 20140620, end: 20140620
  3. HUMIRA [Suspect]
     Active Substance: ADALIMUMAB
     Dosage: LOADING DOSE AT WEEK 2
     Route: 058
     Dates: start: 201407, end: 201407

REACTIONS (4)
  - Pyrexia [Recovered/Resolved]
  - Epilepsy [Recovered/Resolved]
  - Epilepsy [Recovered/Resolved]
  - Epilepsy [Recovered/Resolved]

NARRATIVE: CASE EVENT DATE: 2014
